FAERS Safety Report 19484143 (Version 1)
Quarter: 2021Q3

REPORT INFORMATION
  Report Type: Spontaneous
  Country: CH (occurrence: CH)
  Receive Date: 20210701
  Receipt Date: 20210701
  Transmission Date: 20211014
  Serious: Yes (Other)
  Sender: FDA-Public Use
  Company Number: CH-TEVA-2021-CH-1927777

PATIENT
  Age: 10 Year
  Sex: Male

DRUGS (1)
  1. ESCITALOPRAM?MEPHA TROPFEN [Suspect]
     Active Substance: ESCITALOPRAM OXALATE
     Indication: PRODUCT USED FOR UNKNOWN INDICATION
     Dosage: 2 DROPS / MG
     Route: 048
     Dates: start: 20210617, end: 202106

REACTIONS (4)
  - Gait inability [Unknown]
  - Myalgia [Unknown]
  - Tongue movement disturbance [Unknown]
  - Off label use [Unknown]

NARRATIVE: CASE EVENT DATE: 202106
